FAERS Safety Report 24696920 (Version 1)
Quarter: 2024Q4

REPORT INFORMATION
  Report Type: Spontaneous
  Country: US (occurrence: US)
  Receive Date: 20241204
  Receipt Date: 20241204
  Transmission Date: 20250115
  Serious: Yes (Other)
  Sender: COLGATE
  Company Number: US-COLGATE PALMOLIVE COMPANY-20241101712

PATIENT
  Age: 9 Year
  Sex: Female

DRUGS (1)
  1. CHILDRENS SILLY STRAWBERRY [Suspect]
     Active Substance: SODIUM MONOFLUOROPHOSPHATE

REACTIONS (2)
  - Pneumonia [Unknown]
  - Product contamination microbial [Unknown]
